FAERS Safety Report 5332127-4 (Version None)
Quarter: 2007Q2

REPORT INFORMATION
  Report Type: 
  Country: None (occurrence: None)
  Receive Date: 20070523
  Receipt Date: 20070518
  Transmission Date: 20071010
  Serious: Yes (Life-Threatening, Other)
  Sender: FDA-Public Use
  Company Number: PHHO2006JP01986

PATIENT
  Age: 72 Year
  Sex: Male
  Weight: 46 kg

DRUGS (3)
  1. GRANDAXIN [Concomitant]
     Indication: AUTONOMIC NERVOUS SYSTEM IMBALANCE
  2. DIOVAN [Suspect]
     Indication: HYPERTENSION
     Dosage: 80 MG, QD
     Route: 048
     Dates: start: 20030715, end: 20030722
  3. DIOVAN [Suspect]
     Dosage: 160 MG, QD
     Route: 048
     Dates: start: 20030723, end: 20050428

REACTIONS (4)
  - CEREBRAL INFARCTION [None]
  - DIZZINESS [None]
  - GASTRIC CANCER [None]
  - TONGUE PARALYSIS [None]
